FAERS Safety Report 11854571 (Version 1)
Quarter: 2015Q4

REPORT INFORMATION
  Report Type: Spontaneous
  Country: DE (occurrence: DE)
  Receive Date: 20151221
  Receipt Date: 20151221
  Transmission Date: 20160305
  Serious: Yes (Life-Threatening)
  Sender: FDA-Public Use
  Company Number: DE-WEST-WARD PHARMACEUTICALS CORP.-DE-H14001-15-02128

PATIENT
  Age: 53 Year
  Sex: Male

DRUGS (3)
  1. CISTUS TEA [Suspect]
     Active Substance: HERBALS
     Indication: PRODUCT USED FOR UNKNOWN INDICATION
     Route: 048
     Dates: start: 20151112, end: 20151112
  2. CISTUS TEA [Suspect]
     Active Substance: HERBALS
     Route: 048
     Dates: start: 20151114, end: 20151114
  3. CEFTRIAXON [Suspect]
     Active Substance: CEFTRIAXONE
     Indication: BORRELIA INFECTION
     Route: 042
     Dates: start: 20151112, end: 20151119

REACTIONS (6)
  - Anuria [Unknown]
  - Acute kidney injury [Not Recovered/Not Resolved]
  - Autoimmune haemolytic anaemia [Not Recovered/Not Resolved]
  - Thrombocytopenia [Not Recovered/Not Resolved]
  - Chromaturia [Unknown]
  - Haemolysis [Unknown]

NARRATIVE: CASE EVENT DATE: 201511
